FAERS Safety Report 13752645 (Version 1)
Quarter: 2017Q3

REPORT INFORMATION
  Report Type: Spontaneous
  Country: US (occurrence: US)
  Receive Date: 20170713
  Receipt Date: 20170713
  Transmission Date: 20171127
  Serious: No
  Sender: FDA-Public Use
  Company Number: None

PATIENT
  Age: 74 Year
  Sex: Male

DRUGS (1)
  1. OMEPRAZOLE. [Suspect]
     Active Substance: OMEPRAZOLE
     Dosage: ?          OTHER DOSE:MG;?
     Route: 048
     Dates: start: 20170712, end: 20170713

REACTIONS (2)
  - Middle insomnia [None]
  - Energy increased [None]

NARRATIVE: CASE EVENT DATE: 20170712
